FAERS Safety Report 18807589 (Version 1)
Quarter: 2021Q1

REPORT INFORMATION
  Report Type: Spontaneous
  Country: US (occurrence: US)
  Receive Date: 20210129
  Receipt Date: 20210129
  Transmission Date: 20210419
  Serious: Yes (Hospitalization)
  Sender: FDA-Public Use
  Company Number: None

PATIENT
  Age: 7 Year
  Sex: Male

DRUGS (3)
  1. NORDITROPIN [Concomitant]
     Active Substance: SOMATROPIN
  2. PREDNISONE. [Concomitant]
     Active Substance: PREDNISONE
  3. PROGRAF [Suspect]
     Active Substance: TACROLIMUS
     Indication: RENAL TRANSPLANT
     Dosage: ?          OTHER FREQUENCY:EVERY 12 HOURS;?
     Route: 048
     Dates: start: 20180419

REACTIONS (1)
  - Lymphoma [None]

NARRATIVE: CASE EVENT DATE: 20210105
